FAERS Safety Report 5871081-3 (Version None)
Quarter: 2008Q3

REPORT INFORMATION
  Report Type: 
  Country: None (occurrence: None)
  Receive Date: 20080904
  Receipt Date: 20080828
  Transmission Date: 20090109
  Serious: Yes (Hospitalization, Other)
  Sender: FDA-Public Use
  Company Number: DE-PFIZER INC-2008055971

PATIENT
  Sex: Female
  Weight: 83 kg

DRUGS (7)
  1. SUTENT [Suspect]
     Indication: RENAL CELL CARCINOMA
     Dosage: DAILY DOSE:25MG
     Route: 048
     Dates: start: 20060906, end: 20080101
  2. NEBILET [Concomitant]
  3. CARMEN [Concomitant]
  4. TOREM [Concomitant]
  5. ASPIRIN [Concomitant]
  6. LACTULOSE [Concomitant]
  7. ALL OTHER THERAPEUTIC PRODUCTS [Concomitant]

REACTIONS (3)
  - AORTIC STENOSIS [None]
  - AORTIC VALVE INCOMPETENCE [None]
  - CARDIAC FAILURE [None]
